FAERS Safety Report 9579242 (Version 2)
Quarter: 2015Q4

REPORT INFORMATION
  Report Type: Report from Study
  Country: US (occurrence: US)
  Receive Date: 20131001
  Receipt Date: 20151124
  Transmission Date: 20160305
  Serious: Yes (Other)
  Sender: FDA-Public Use
  Company Number: US-AMGEN-USASP2013017758

PATIENT
  Age: 73 Year
  Sex: Female

DRUGS (1)
  1. ENBREL [Suspect]
     Active Substance: ETANERCEPT
     Indication: PSORIASIS
     Dosage: 50 MG, 2 TIMES/WK
     Route: 058
     Dates: start: 20091228

REACTIONS (5)
  - Osteoarthritis [Unknown]
  - Hypothyroidism [Unknown]
  - Psoriasis [Unknown]
  - Endometrial cancer [Unknown]
  - Gingival cyst [Unknown]

NARRATIVE: CASE EVENT DATE: 2013
